FAERS Safety Report 4489302-0 (Version None)
Quarter: 2004Q4

REPORT INFORMATION
  Report Type: 
  Country: None (occurrence: None)
  Receive Date: 20041026
  Receipt Date: 20041012
  Transmission Date: 20050328
  Serious: Yes (Death, Hospitalization)
  Sender: FDA-Public Use
  Company Number: 033-0981-M0000499

PATIENT
  Age: 69 Year
  Sex: Male
  Weight: 73 kg

DRUGS (4)
  1. ATORVASTATIN CALCIUM [Suspect]
     Indication: ISCHAEMIC HEART DISEASE PROPHYLAXIS
     Dosage: 10 MG (DAILY), ORAL
     Route: 048
     Dates: start: 19971104, end: 20001108
  2. QUINAPRIL HCL [Concomitant]
  3. INSULIN [Concomitant]
  4. ACTRAPID (INSULIN HUMAN) [Concomitant]

REACTIONS (1)
  - PULMONARY FIBROSIS [None]
